FAERS Safety Report 11772567 (Version 2)
Quarter: 2016Q1

REPORT INFORMATION
  Report Type: Spontaneous
  Country: BR (occurrence: BR)
  Receive Date: 20151124
  Receipt Date: 20160107
  Transmission Date: 20160525
  Serious: Yes (Death, Hospitalization)
  Sender: FDA-Public Use
  Company Number: BR-PFIZER INC-2015387819

PATIENT
  Age: 49 Year
  Sex: Female
  Weight: 72 kg

DRUGS (1)
  1. SUTENT [Suspect]
     Active Substance: SUNITINIB MALATE
     Indication: METASTATIC RENAL CELL CARCINOMA
     Dosage: 50 MG, CYCLIC (CYCLE 4X2)
     Route: 048
     Dates: start: 20151030

REACTIONS (5)
  - Inflammation [Unknown]
  - Dysphagia [Unknown]
  - Disease progression [Fatal]
  - Metastatic renal cell carcinoma [Fatal]
  - Feeding disorder [Unknown]

NARRATIVE: CASE EVENT DATE: 2015
